FAERS Safety Report 24030161 (Version 1)
Quarter: 2024Q2

REPORT INFORMATION
  Report Type: Spontaneous
  Country: US (occurrence: US)
  Receive Date: 20240628
  Receipt Date: 20240628
  Transmission Date: 20240716
  Serious: Yes (Hospitalization, Other)
  Sender: FDA-Public Use
  Company Number: US-FreseniusKabi-FK202410120

PATIENT
  Age: 78 Year
  Sex: Female

DRUGS (13)
  1. KETAMINE [Suspect]
     Active Substance: KETAMINE
     Indication: Anaesthesia
     Dosage: 3RD AND 13TH TREATMENT OF ECT THE KETAMINE WAS  USED IN PLACE OF METHOHEXITAL DUE TO CONCERN ABOUT S
  2. DULOXETINE [Concomitant]
     Active Substance: DULOXETINE
     Indication: Major depression
  3. DULOXETINE [Concomitant]
     Active Substance: DULOXETINE
     Dosage: DULOXETINE WAS REINITIATED AND GRADUALLY INCREASED TO 90 MG/DAY.
  4. ALPRAZOLAM [Concomitant]
     Active Substance: ALPRAZOLAM
     Indication: Major depression
  5. MIRTAZAPINE [Concomitant]
     Active Substance: MIRTAZAPINE
     Indication: Major depression
     Dosage: MIRTAZAPINE WAS TITRATED TO 30 MG NIGHTLY?SHE WAS DISCHARGED ON MIRTAZAPINE 30 MG NIGHTLY, RISPERIDO
  6. CARIPRAZINE [Concomitant]
     Active Substance: CARIPRAZINE
     Indication: Major depression
  7. LORAZEPAM [Concomitant]
     Active Substance: LORAZEPAM
     Indication: Major depression
     Dosage: WHEN SYMPTOMS IMPROVED, SHE WAS RESTARTED ON?LORAZEPAM 0.5 MG ONCE A DAY AS NEEDED FOR SEVERE ANXIET
  8. METHOHEXITAL [Concomitant]
     Active Substance: METHOHEXITAL
     Indication: Anaesthesia
     Dosage: AFTER THE PATIENT WAS STABILIZED, ECT WAS RESUMED?UTILIZING METHOHEXITAL AND SUCCINYLCHOLINE.?SHE UN
  9. SUCCINYLCHOLINE [Concomitant]
     Active Substance: SUCCINYLCHOLINE
     Indication: Anaesthesia
     Dosage: AFTER THE PATIENT WAS STABILIZED, ECT WAS RESUMED?UTILIZING METHOHEXITAL AND SUCCINYLCHOLINE.?SHE UN
  10. RISPERIDONE [Concomitant]
     Active Substance: RISPERIDONE
     Indication: Delirium
     Dosage: 0.5 MG NIGHTLY WAS ADDED AND TITRATED UP TO 1.5 MG?SHE WAS DISCHARGED ON MIRTAZAPINE 30 MG NIGHTLY,
  11. SIMVASTATIN [Concomitant]
     Active Substance: SIMVASTATIN
     Indication: Hyperlipidaemia
     Dosage: SIMVASTATIN 40 MG AT BEDTIME. HOME MEDICATIONS CONTINUED AT THE TIME OF ADMISSION
  12. LOSARTAN [Concomitant]
     Active Substance: LOSARTAN
     Indication: Hypertension
     Dosage: LOSARTAN 40 MG/D. HOME MEDICATIONS CONTINUED AT THE TIME OF ADMISSION
  13. LEVOTHYROXINE [Concomitant]
     Active Substance: LEVOTHYROXINE\LEVOTHYROXINE SODIUM
     Indication: Hypothyroidism
     Dosage: LEVOTHYROXINE 75 MCG/D. HOME MEDICATIONS CONTINUED AT THE TIME OF ADMISSION

REACTIONS (1)
  - Serotonin syndrome [Recovered/Resolved]
